FAERS Safety Report 10457315 (Version 1)
Quarter: 2014Q3

REPORT INFORMATION
  Report Type: Spontaneous
  Country: GB (occurrence: GB)
  Receive Date: 20140916
  Receipt Date: 20140916
  Transmission Date: 20150326
  Serious: Yes (Other)
  Sender: FDA-Public Use
  Company Number: GB-ACTAVIS-2014-19809

PATIENT
  Age: 70 Year
  Sex: Male
  Weight: 99 kg

DRUGS (3)
  1. AMLODIPINE [Concomitant]
     Active Substance: AMLODIPINE BESYLATE
     Indication: PRODUCT USED FOR UNKNOWN INDICATION
     Dosage: UNK
     Route: 065
  2. SIMVASTATIN. [Concomitant]
     Active Substance: SIMVASTATIN
     Indication: PRODUCT USED FOR UNKNOWN INDICATION
     Dosage: UNK
     Route: 065
  3. ACYCLOVIR (UNKNOWN) [Suspect]
     Active Substance: ACYCLOVIR
     Indication: HERPES ZOSTER
     Dosage: 800 MG, UNKNOWN
     Route: 048
     Dates: start: 20140813, end: 20140814

REACTIONS (4)
  - Coordination abnormal [Recovering/Resolving]
  - Aphasia [Recovering/Resolving]
  - Speech disorder [Recovering/Resolving]
  - Reading disorder [Recovering/Resolving]

NARRATIVE: CASE EVENT DATE: 20140814
